FAERS Safety Report 16070185 (Version 3)
Quarter: 2019Q1

REPORT INFORMATION
  Report Type: Spontaneous
  Country: PT (occurrence: PT)
  Receive Date: 20190314
  Receipt Date: 20190324
  Transmission Date: 20190418
  Serious: Yes (Hospitalization, Other)
  Sender: FDA-Public Use
  Company Number: PT-ACCORD-112918

PATIENT
  Age: 65 Year
  Sex: Female

DRUGS (5)
  1. AMOXICILLIN/CLAVULANIC ACID [Concomitant]
     Indication: PNEUMONIA
     Route: 065
  2. ALENDRONIC ACID/CHOLECALCIFEROL [Concomitant]
     Indication: OSTEOPOROSIS
     Route: 065
  3. INDAPAMIDE/PERINDOPRIL [Suspect]
     Active Substance: INDAPAMIDE\PERINDOPRIL
     Indication: HYPERTENSION
     Route: 065
  4. AZITHROMYCIN ANHYDROUS. [Concomitant]
     Active Substance: AZITHROMYCIN ANHYDROUS
     Indication: PNEUMONIA
     Route: 065
  5. LISINOPRIL. [Suspect]
     Active Substance: LISINOPRIL
     Indication: HYPERTENSION
     Route: 048

REACTIONS (2)
  - Eosinophilic pneumonia [Recovered/Resolved]
  - Respiratory failure [Recovered/Resolved]
